FAERS Safety Report 17659125 (Version 1)
Quarter: 2020Q2

REPORT INFORMATION
  Report Type: Spontaneous
  Country: CH (occurrence: CH)
  Receive Date: 20200413
  Receipt Date: 20200413
  Transmission Date: 20200713
  Serious: Yes (Death, Hospitalization)
  Sender: FDA-Public Use
  Company Number: CH-ROCHE-2577576

PATIENT
  Age: 65 Year
  Sex: Male

DRUGS (5)
  1. ACTEMRA [Suspect]
     Active Substance: TOCILIZUMAB
     Indication: CORONAVIRUS INFECTION
     Route: 041
     Dates: start: 20200320, end: 20200321
  2. TAPAZOLE [Concomitant]
     Active Substance: METHIMAZOLE
     Dosage: 5 MG/DAY
     Route: 065
  3. XARELTO [Concomitant]
     Active Substance: RIVAROXABAN
     Dosage: 20 MG/DAY
     Route: 065
  4. TAMBOCOR [Concomitant]
     Active Substance: FLECAINIDE ACETATE
     Dosage: 150 MG/DAY
     Route: 065
  5. CONCOR [Concomitant]
     Active Substance: BISOPROLOL FUMARATE
     Route: 048
     Dates: end: 20200322

REACTIONS (4)
  - Condition aggravated [Fatal]
  - Intentional product use issue [Fatal]
  - Pneumonia [Fatal]
  - Off label use [Fatal]

NARRATIVE: CASE EVENT DATE: 20200320
